FAERS Safety Report 25239869 (Version 2)
Quarter: 2025Q2

REPORT INFORMATION
  Report Type: Report from Study
  Country: KR (occurrence: KR)
  Receive Date: 20250425
  Receipt Date: 20250603
  Transmission Date: 20250717
  Serious: Yes (Other)
  Sender: ALEXION PHARMACEUTICALS
  Company Number: KR-AstraZeneca-CH-00852884A

PATIENT

DRUGS (2)
  1. TAGRISSO [Suspect]
     Active Substance: OSIMERTINIB
     Dosage: 80 MILLIGRAM, QD
  2. TAGRISSO [Suspect]
     Active Substance: OSIMERTINIB
     Route: 065

REACTIONS (4)
  - Poor peripheral circulation [Not Recovered/Not Resolved]
  - Muscle spasms [Recovering/Resolving]
  - Intentional dose omission [Recovered/Resolved]
  - Pain in extremity [Recovered/Resolved]
